FAERS Safety Report 12708516 (Version 2)
Quarter: 2016Q4

REPORT INFORMATION
  Report Type: Spontaneous
  Country: US (occurrence: US)
  Receive Date: 20160901
  Receipt Date: 20161102
  Transmission Date: 20170207
  Serious: Yes (Other)
  Sender: FDA-Public Use
  Company Number: US-GLAXOSMITHKLINE-US2016125767

PATIENT
  Sex: Female

DRUGS (5)
  1. METOPROLOL. [Concomitant]
     Active Substance: METOPROLOL
  2. ANORO ELLIPTA [Suspect]
     Active Substance: UMECLIDINIUM BROMIDE\VILANTEROL TRIFENATATE
     Indication: OXYGEN SATURATION ABNORMAL
     Dosage: 1 PUFF(S), 1D
     Dates: start: 20160716
  3. COUMADIN [Concomitant]
     Active Substance: WARFARIN SODIUM
  4. FLECAINIDE [Concomitant]
     Active Substance: FLECAINIDE
  5. ANORO ELLIPTA [Suspect]
     Active Substance: UMECLIDINIUM BROMIDE\VILANTEROL TRIFENATATE
     Dosage: 1 PUFF(S), 1D

REACTIONS (2)
  - Blood pressure abnormal [Recovered/Resolved]
  - Atrial fibrillation [Recovered/Resolved]
